FAERS Safety Report 5837030-9 (Version None)
Quarter: 2008Q3

REPORT INFORMATION
  Report Type: 
  Country: None (occurrence: None)
  Receive Date: 20080807
  Receipt Date: 20071001
  Transmission Date: 20090109
  Serious: No
  Sender: FDA-Public Use
  Company Number: US-BRISTOL-MYERS SQUIBB COMPANY-13925250

PATIENT
  Age: 74 Year
  Sex: Male

DRUGS (4)
  1. GLUCOVANCE [Suspect]
     Indication: DIABETES MELLITUS
     Dosage: ON 24-SEP-2007 GLUCOVANCE 5/500 MG WAS INCREASED TO THREE TABLETS DAILY.
     Route: 048
     Dates: start: 20030101
  2. VYTORIN [Concomitant]
  3. BENICAR [Concomitant]
  4. MULTI-VITAMIN [Concomitant]

REACTIONS (1)
  - BLOOD GLUCOSE FLUCTUATION [None]
